FAERS Safety Report 7642827-9 (Version None)
Quarter: 2011Q3

REPORT INFORMATION
  Report Type: 
  Country: None (occurrence: None)
  Receive Date: 20110728
  Receipt Date: 20110718
  Transmission Date: 20111222
  Serious: Yes (Hospitalization, Other)
  Sender: FDA-Public Use
  Company Number: US-BAXTER-2011BH021878

PATIENT
  Sex: Male

DRUGS (1)
  1. DIANEAL [Suspect]
     Indication: PERITONEAL DIALYSIS
     Route: 033

REACTIONS (6)
  - FLUID OVERLOAD [None]
  - CONSTIPATION [None]
  - PERITONITIS BACTERIAL [None]
  - BLOODY PERITONEAL EFFLUENT [None]
  - TREATMENT NONCOMPLIANCE [None]
  - RESPIRATORY DISORDER [None]
